FAERS Safety Report 8922754 (Version 2)
Quarter: 2012Q4

REPORT INFORMATION
  Report Type: 
  Country: SE (occurrence: SE)
  Receive Date: 20121123
  Receipt Date: 20121206
  Transmission Date: 20130627
  Serious: Yes (Other)
  Sender: FDA-Public Use
  Company Number: PHHY2012SE105709

PATIENT
  Age: 43 Year
  Sex: Female

DRUGS (1)
  1. TEGRETOL RETARD [Suspect]
     Indication: EPILEPSY
     Dosage: 200 mg, UNK
     Route: 048
     Dates: start: 2008

REACTIONS (3)
  - Loss of consciousness [Recovering/Resolving]
  - Blood alcohol increased [Unknown]
  - Drug interaction [Unknown]
